FAERS Safety Report 7661529-6 (Version None)
Quarter: 2011Q3

REPORT INFORMATION
  Report Type: 
  Country: None (occurrence: None)
  Receive Date: 20110805
  Receipt Date: 20101019
  Transmission Date: 20111222
  Serious: No
  Sender: FDA-Public Use
  Company Number: US-ABBOTT-10P-163-0679610-00

PATIENT
  Sex: Female
  Weight: 77.18 kg

DRUGS (2)
  1. PREDNISONE [Concomitant]
     Indication: HYPERSENSITIVITY
     Dates: start: 20100901
  2. NIASPAN [Suspect]
     Indication: BLOOD CHOLESTEROL INCREASED
     Route: 048
     Dates: start: 20101007

REACTIONS (1)
  - RASH [None]
